FAERS Safety Report 10333018 (Version 1)
Quarter: 2014Q3

REPORT INFORMATION
  Report Type: Spontaneous
  Country: US (occurrence: US)
  Receive Date: 20140722
  Receipt Date: 20140722
  Transmission Date: 20150326
  Serious: Yes (Hospitalization, Other)
  Sender: FDA-Public Use
  Company Number: CHPA2014US009603

PATIENT
  Age: 92 Year
  Sex: Female

DRUGS (2)
  1. MAALOX ADVANCED REGULAR STRENGTH MINT [Suspect]
     Active Substance: ALUMINUM HYDROXIDE\DIMETHICONE\MAGNESIUM HYDROXIDE
     Indication: HYPERCHLORHYDRIA
     Dosage: 6 TSP AT ONE TIME, UNK
     Route: 048
     Dates: start: 1994
  2. METFORMIN [Concomitant]
     Active Substance: METFORMIN HYDROCHLORIDE
     Indication: DIABETES MELLITUS
     Dosage: UNK
     Dates: start: 2010

REACTIONS (4)
  - Incorrect dose administered [Unknown]
  - Dysuria [Unknown]
  - Blood potassium decreased [Unknown]
  - Expired product administered [Unknown]
